FAERS Safety Report 24925081 (Version 1)
Quarter: 2025Q1

REPORT INFORMATION
  Report Type: Report from Study
  Country: IE (occurrence: IE)
  Receive Date: 20250204
  Receipt Date: 20250204
  Transmission Date: 20250408
  Serious: No
  Sender: EXELIXIS
  Company Number: IE-IPSEN Group, Research and Development-2024-10110

PATIENT
  Sex: Male

DRUGS (1)
  1. CABOMETYX [Suspect]
     Active Substance: CABOZANTINIB S-MALATE
     Indication: Renal cell carcinoma
     Route: 048
     Dates: start: 20240314, end: 20240515

REACTIONS (3)
  - Burning sensation [Not Recovered/Not Resolved]
  - Limb mass [Not Recovered/Not Resolved]
  - Skin fissures [Not Recovered/Not Resolved]
